FAERS Safety Report 4502888-2 (Version None)
Quarter: 2004Q4

REPORT INFORMATION
  Report Type: 
  Country: None (occurrence: None)
  Receive Date: 20041116
  Receipt Date: 20041116
  Transmission Date: 20050328
  Serious: Yes (Other)
  Sender: FDA-Public Use
  Company Number: None

PATIENT
  Age: 76 Year
  Sex: Male
  Weight: 68.4932 kg

DRUGS (4)
  1. THERACYS [Suspect]
     Indication: BLADDER CANCER
     Dosage: 81 MG INTRAVESICAL VIA A CATHETER
     Route: 043
     Dates: start: 20041102
  2. LANOXIN [Concomitant]
  3. PRINIVIL [Concomitant]
  4. LIPITOR [Concomitant]

REACTIONS (8)
  - CHILLS [None]
  - INFLUENZA LIKE ILLNESS [None]
  - MICTURITION URGENCY [None]
  - NAUSEA [None]
  - PAIN [None]
  - POLLAKIURIA [None]
  - PYREXIA [None]
  - URINARY INCONTINENCE [None]
